FAERS Safety Report 10709942 (Version 1)
Quarter: 2015Q1

REPORT INFORMATION
  Report Type: Report from Study
  Country: US (occurrence: US)
  Receive Date: 20150114
  Receipt Date: 20150114
  Transmission Date: 20150721
  Serious: Yes (Death)
  Sender: FDA-Public Use
  Company Number: US-ASTELLAS-2015US001075

PATIENT
  Age: 62 Year

DRUGS (3)
  1. DOVITINIB LACTATE [Suspect]
     Active Substance: DOVITINIB LACTATE
     Indication: LUNG NEOPLASM MALIGNANT
     Route: 065
     Dates: start: 20120725
  2. ERLOTINIB [Suspect]
     Active Substance: ERLOTINIB
     Indication: LUNG NEOPLASM MALIGNANT
     Dosage: UNK UNK, UNKNOWN FREQ.
     Route: 065
     Dates: start: 20101223, end: 20110606
  3. ERLOTINIB [Suspect]
     Active Substance: ERLOTINIB
     Route: 065
     Dates: start: 20120725, end: 20130306

REACTIONS (1)
  - Death [Fatal]
